FAERS Safety Report 24622711 (Version 1)
Quarter: 2024Q4

REPORT INFORMATION
  Report Type: Spontaneous
  Country: US (occurrence: US)
  Receive Date: 20241115
  Receipt Date: 20241115
  Transmission Date: 20250114
  Serious: No
  Sender: STALLERGENES
  Company Number: US-STALCOR-2024-AER-01959

PATIENT
  Age: 4 Year
  Sex: Female

DRUGS (3)
  1. PALFORZIA [Suspect]
     Active Substance: PEANUT
     Indication: Food allergy
     Dosage: LEVEL 1
     Route: 048
     Dates: end: 20240819
  2. PALFORZIA [Suspect]
     Active Substance: PEANUT
     Dosage: 6X1 MILLIGRAM. LEVEL 2
     Route: 048
  3. PALFORZIA [Suspect]
     Active Substance: PEANUT
     Route: 048
     Dates: start: 20240822

REACTIONS (2)
  - Nasopharyngitis [Not Recovered/Not Resolved]
  - Therapy interrupted [Not Recovered/Not Resolved]

NARRATIVE: CASE EVENT DATE: 20240819
